FAERS Safety Report 8376290-X (Version None)
Quarter: 2012Q2

REPORT INFORMATION
  Report Type: 
  Country: None (occurrence: None)
  Receive Date: 20120522
  Receipt Date: 20120522
  Transmission Date: 20120825
  Serious: Yes (Hospitalization)
  Sender: FDA-Public Use
  Company Number: ZA-BAYER-2012-012077

PATIENT
  Age: 34 Year
  Sex: Female
  Weight: 64.3 kg

DRUGS (6)
  1. RIFAMPICIN [Suspect]
     Indication: PULMONARY TUBERCULOSIS
     Dosage: DAILY DOSE 600 MG
     Dates: start: 20111111
  2. PLACEBO [Suspect]
     Indication: PULMONARY TUBERCULOSIS
     Dosage: UNK
     Dates: start: 20111111
  3. ETHAMBUTOL HYDROCHLORIDE [Suspect]
     Indication: PULMONARY TUBERCULOSIS
     Dosage: 800 MG DAILY
     Dates: start: 20111111, end: 20120108
  4. MOXIFLOXACIN [Suspect]
     Dosage: DAILY DOSE 400 MG
     Dates: start: 20111111
  5. PYRAZINAMIDE [Suspect]
     Indication: PULMONARY TUBERCULOSIS
     Dosage: 1000 MG DAILY
     Dates: start: 20111111, end: 20120108
  6. MOXIFLOXACIN [Suspect]

REACTIONS (1)
  - PANNICULITIS [None]
